FAERS Safety Report 4329928-8 (Version None)
Quarter: 2004Q1

REPORT INFORMATION
  Report Type: 
  Country: None (occurrence: None)
  Receive Date: 20040329
  Receipt Date: 20040316
  Transmission Date: 20041129
  Serious: Yes (Hospitalization)
  Sender: FDA-Public Use
  Company Number: 20040300239

PATIENT
  Age: 36 Year
  Sex: Male

DRUGS (4)
  1. ATIVAN [Suspect]
     Indication: OVERDOSE
  2. CIPRAMIL (CITALOPRAM HYDROBROMIDE) [Suspect]
     Dosage: 5000 MG
  3. CLOZARIL [Suspect]
     Dosage: 500 MG PO
     Route: 048
  4. DIAZEPAM [Concomitant]

REACTIONS (3)
  - INTENTIONAL OVERDOSE [None]
  - MULTIPLE DRUG OVERDOSE [None]
  - SUICIDE ATTEMPT [None]
